FAERS Safety Report 8639176 (Version 2)
Quarter: 2012Q4

REPORT INFORMATION
  Report Type: Spontaneous
  Country: US (occurrence: None)
  Receive Date: 20120618
  Receipt Date: 20121106
  Transmission Date: 20130627
  Serious: Yes (Death, Other)
  Sender: FDA-Public Use
  Company Number: 2012SGN00256

PATIENT

DRUGS (1)
  1. ADCETRIS [Suspect]
     Indication: ANAPLASTIC LARGE-CELL LYMPHOMA

REACTIONS (3)
  - Rectal haemorrhage [None]
  - Disease progression [None]
  - Anaplastic large-cell lymphoma [None]
